FAERS Safety Report 22151376 (Version 2)
Quarter: 2023Q2

REPORT INFORMATION
  Report Type: Report from Study
  Country: JP (occurrence: JP)
  Receive Date: 20230329
  Receipt Date: 20230607
  Transmission Date: 20230722
  Serious: Yes (Hospitalization)
  Sender: FDA-Public Use
  Company Number: JP-SERVIER-S23002707

PATIENT
  Age: 74 Year
  Sex: Male
  Weight: 49.5 kg

DRUGS (31)
  1. ONIVYDE [Suspect]
     Active Substance: IRINOTECAN HYDROCHLORIDE
     Indication: Pancreatic carcinoma
     Dosage: 68.5 MG/M2
     Route: 065
     Dates: start: 20220106, end: 20220106
  2. ONIVYDE [Suspect]
     Active Substance: IRINOTECAN HYDROCHLORIDE
     Dosage: 48.1 MG/M2
     Route: 065
     Dates: start: 20220204, end: 20220204
  3. ONIVYDE [Suspect]
     Active Substance: IRINOTECAN HYDROCHLORIDE
     Dosage: 49.6 MG/M2
     Route: 065
     Dates: start: 20220218, end: 20220218
  4. ONIVYDE [Suspect]
     Active Substance: IRINOTECAN HYDROCHLORIDE
     Dosage: 50.8 MG/M2
     Route: 065
     Dates: start: 20220304, end: 20220304
  5. ONIVYDE [Suspect]
     Active Substance: IRINOTECAN HYDROCHLORIDE
     Dosage: 50.7 MG/M2
     Route: 065
     Dates: start: 20220401, end: 20220401
  6. ONIVYDE [Suspect]
     Active Substance: IRINOTECAN HYDROCHLORIDE
     Dosage: 51.9 MG/M2
     Route: 065
     Dates: start: 20220415, end: 20220415
  7. ONIVYDE [Suspect]
     Active Substance: IRINOTECAN HYDROCHLORIDE
     Dosage: 39.9 MG/M2
     Route: 065
     Dates: start: 20220506, end: 20220506
  8. ONIVYDE [Suspect]
     Active Substance: IRINOTECAN HYDROCHLORIDE
     Dosage: 40.9 MG/M2
     Route: 065
     Dates: start: 20220520, end: 20220520
  9. ONIVYDE [Suspect]
     Active Substance: IRINOTECAN HYDROCHLORIDE
     Dosage: 41.2 MG/M2
     Route: 065
     Dates: start: 20220603, end: 20220603
  10. LEVOLEUCOVORIN CALCIUM [Concomitant]
     Active Substance: LEVOLEUCOVORIN CALCIUM
     Indication: Pancreatic carcinoma
     Dosage: 192.3 MG/M2
     Dates: start: 20220106, end: 20220106
  11. LEVOLEUCOVORIN CALCIUM [Concomitant]
     Active Substance: LEVOLEUCOVORIN CALCIUM
     Dosage: 195.9 MG/M2
     Route: 065
     Dates: start: 20220204, end: 20220204
  12. LEVOLEUCOVORIN CALCIUM [Concomitant]
     Active Substance: LEVOLEUCOVORIN CALCIUM
     Dosage: 202.0 MG/M2
     Dates: start: 20220218, end: 20220218
  13. LEVOLEUCOVORIN CALCIUM [Concomitant]
     Active Substance: LEVOLEUCOVORIN CALCIUM
     Dosage: 206.6 MG/M2
     Dates: start: 20220304, end: 20220304
  14. LEVOLEUCOVORIN CALCIUM [Concomitant]
     Active Substance: LEVOLEUCOVORIN CALCIUM
     Dosage: 206.3 MG/M2
     Dates: start: 20220401, end: 20220401
  15. LEVOLEUCOVORIN CALCIUM [Concomitant]
     Active Substance: LEVOLEUCOVORIN CALCIUM
     Dosage: 211.1 MG/M2
     Dates: start: 20220415, end: 20220415
  16. LEVOLEUCOVORIN CALCIUM [Concomitant]
     Active Substance: LEVOLEUCOVORIN CALCIUM
     Dosage: 216.8 MG/M2
     Dates: start: 20220506, end: 20220506
  17. LEVOLEUCOVORIN CALCIUM [Concomitant]
     Active Substance: LEVOLEUCOVORIN CALCIUM
     Dosage: 222.2 MG/M2
     Dates: start: 20220520, end: 20220520
  18. LEVOLEUCOVORIN CALCIUM [Concomitant]
     Active Substance: LEVOLEUCOVORIN CALCIUM
     Dosage: 223.5 MG/M2
     Dates: start: 20220603, end: 20220603
  19. FLUOROURACIL [Concomitant]
     Active Substance: FLUOROURACIL
     Indication: Pancreatic carcinoma
     Dosage: 2307.5 MG/M2
     Dates: start: 20220106, end: 20220108
  20. FLUOROURACIL [Concomitant]
     Active Substance: FLUOROURACIL
     Dosage: 1790.8 MG/M2
     Dates: start: 20220204, end: 20220206
  21. FLUOROURACIL [Concomitant]
     Active Substance: FLUOROURACIL
     Dosage: 1847.0 MG/M2
     Dates: start: 20220218, end: 20220220
  22. FLUOROURACIL [Concomitant]
     Active Substance: FLUOROURACIL
     Dosage: 1888.5 MG/M2
     Dates: start: 20220304, end: 20220306
  23. FLUOROURACIL [Concomitant]
     Active Substance: FLUOROURACIL
     Dosage: 1885.8 MG/M2
     Dates: start: 20220401, end: 20220403
  24. FLUOROURACIL [Concomitant]
     Active Substance: FLUOROURACIL
     Dosage: 1930.4 MG/M2
     Dates: start: 20220415, end: 20220417
  25. FLUOROURACIL [Concomitant]
     Active Substance: FLUOROURACIL
     Dosage: 1300.6 MG/M2
     Dates: start: 20220506, end: 20220508
  26. FLUOROURACIL [Concomitant]
     Active Substance: FLUOROURACIL
     Dosage: 1333.1 MG/M2
     Dates: start: 20220520, end: 20220522
  27. FLUOROURACIL [Concomitant]
     Active Substance: FLUOROURACIL
     Dosage: 1341.1 MG/M2
     Dates: start: 20220603, end: 20220603
  28. GRANISETRON HYDROCHLORIDE [Concomitant]
     Active Substance: GRANISETRON HYDROCHLORIDE
     Indication: Chemotherapy side effect prophylaxis
     Dosage: UNK
  29. DEXAMETHASONE SODIUM PHOSPHATE [Concomitant]
     Active Substance: DEXAMETHASONE SODIUM PHOSPHATE
     Indication: Chemotherapy side effect prophylaxis
     Dosage: UNK
  30. DEXAMETHASONE [Concomitant]
     Active Substance: DEXAMETHASONE
     Indication: Chemotherapy side effect prophylaxis
     Dosage: UNK
     Route: 048
  31. APREPITANT [Concomitant]
     Active Substance: APREPITANT
     Indication: Chemotherapy side effect prophylaxis
     Dosage: UNK

REACTIONS (3)
  - Pneumocystis jirovecii pneumonia [Recovered/Resolved]
  - Neutrophil count decreased [Recovered/Resolved]
  - Off label use [Unknown]

NARRATIVE: CASE EVENT DATE: 20220106
